FAERS Safety Report 9668761 (Version 2)
Quarter: 2013Q4

REPORT INFORMATION
  Report Type: Spontaneous
  Country: BR (occurrence: BR)
  Receive Date: 20131105
  Receipt Date: 20131105
  Transmission Date: 20140711
  Serious: Yes (Hospitalization, Other)
  Sender: FDA-Public Use
  Company Number: BR-MERCK-1307BRA015178

PATIENT
  Age: 64 Year
  Sex: Female
  Weight: 45 kg

DRUGS (11)
  1. PEGINTRON [Suspect]
     Indication: HEPATITIS C
     Dosage: 80 MICROGRAM, TIW
     Route: 058
     Dates: start: 2006, end: 2006
  2. PEGINTRON [Suspect]
     Dosage: 80 MICROGRAM, TIW
     Route: 058
     Dates: start: 2009, end: 2009
  3. PEGINTRON [Suspect]
     Dosage: 80 MICROGRAM, QW
     Route: 058
     Dates: start: 20130410, end: 20130830
  4. LOSARTAN POTASSIUM [Suspect]
     Indication: HYPERTENSION
     Dosage: 100 MG, QD
     Route: 048
     Dates: start: 2010
  5. LOSARTAN POTASSIUM [Suspect]
     Dosage: 200 MG, ONCE
     Route: 048
     Dates: start: 201307, end: 201307
  6. RIBAVIRIN [Concomitant]
     Indication: HEPATITIS C
     Dosage: 500 MG, QAM
     Route: 048
     Dates: start: 2006, end: 2006
  7. RIBAVIRIN [Concomitant]
     Dosage: 500 MG, QPM
     Route: 048
     Dates: start: 2006, end: 2006
  8. RIBAVIRIN [Concomitant]
     Dosage: 500 MG, QAM
     Route: 048
     Dates: start: 2009, end: 2009
  9. RIBAVIRIN [Concomitant]
     Dosage: 500 MG, QPM
     Route: 048
     Dates: start: 2009, end: 2009
  10. RIBAVIRIN [Concomitant]
     Dosage: 500 MG, QAM
     Dates: start: 20130410
  11. RIBAVIRIN [Concomitant]
     Dosage: 500 MG, QPM
     Dates: start: 20130410

REACTIONS (49)
  - Pseudolymphoma [Recovered/Resolved]
  - Lymphoma operation [Recovered/Resolved]
  - Anaemia [Recovered/Resolved]
  - Anaemia [Recovered/Resolved]
  - Cerebrovascular accident [Recovered/Resolved]
  - Anaemia [Not Recovered/Not Resolved]
  - Weight decreased [Recovered/Resolved]
  - Abdominal pain [Recovered/Resolved]
  - Glossodynia [Recovered/Resolved]
  - Stomatitis [Recovered/Resolved]
  - Pruritus generalised [Recovered/Resolved]
  - Rash generalised [Recovered/Resolved]
  - Alopecia [Recovered/Resolved]
  - Overdose [Unknown]
  - Transfusion [Unknown]
  - Vomiting [Recovered/Resolved]
  - Axillary pain [Recovered/Resolved]
  - Local swelling [Recovered/Resolved]
  - Diarrhoea [Recovered/Resolved]
  - Overdose [Unknown]
  - Weight decreased [Recovered/Resolved]
  - Glossodynia [Recovered/Resolved]
  - Stomatitis [Recovered/Resolved]
  - Pruritus generalised [Recovered/Resolved]
  - Rash generalised [Recovered/Resolved]
  - Alopecia [Recovered/Resolved]
  - Vomiting [Recovered/Resolved]
  - Abdominal pain [Recovered/Resolved]
  - Transfusion [Unknown]
  - Vomiting [Recovered/Resolved]
  - Diarrhoea [Recovered/Resolved]
  - Alopecia [Not Recovered/Not Resolved]
  - Abdominal pain [Recovered/Resolved]
  - Rash generalised [Recovered/Resolved]
  - Pruritus generalised [Recovered/Resolved]
  - Weight decreased [Recovered/Resolved]
  - Stomatitis [Recovered/Resolved]
  - Glossodynia [Recovered/Resolved]
  - Nasal discomfort [Recovered/Resolved]
  - Pain [Recovered/Resolved]
  - Pyrexia [Recovered/Resolved]
  - Transfusion [Unknown]
  - Blister [Not Recovered/Not Resolved]
  - Surgery [Unknown]
  - Dizziness [Recovered/Resolved]
  - Blood pressure increased [Recovered/Resolved]
  - Vomiting [Recovered/Resolved]
  - Overdose [Recovered/Resolved]
  - Hypertension [Not Recovered/Not Resolved]
